FAERS Safety Report 20833663 (Version 6)
Quarter: 2025Q4

REPORT INFORMATION
  Report Type: Spontaneous
  Country: US (occurrence: US)
  Receive Date: 20220516
  Receipt Date: 20251009
  Transmission Date: 20260117
  Serious: Yes (Other)
  Sender: PFIZER
  Company Number: US-PFIZER INC-2017316208

PATIENT
  Age: 27 Year
  Sex: Male

DRUGS (3)
  1. BENEFIX [Suspect]
     Active Substance: COAGULATION FACTOR IX RECOMBINANT HUMAN\ISOPROPYL ALCOHOL
     Indication: Haemorrhage
     Dosage: 7000 IU, AS NEEDED [(+/-10%)]
     Route: 042
  2. BENEFIX [Suspect]
     Active Substance: COAGULATION FACTOR IX RECOMBINANT HUMAN\ISOPROPYL ALCOHOL
     Dosage: 7000 UNITS DAILY AS NEEDED FOR OTHER (BLEED) +/-10%
     Route: 042
  3. BENEFIX [Suspect]
     Active Substance: COAGULATION FACTOR IX RECOMBINANT HUMAN\ISOPROPYL ALCOHOL
     Dosage: INTRAVENOUS PUSH (IVP) DAILY FOR UP TO 3 DAYS FOR BLEED
     Route: 040

REACTIONS (3)
  - Haemarthrosis [Unknown]
  - Wisdom teeth removal [Unknown]
  - Product prescribing error [Unknown]
